FAERS Safety Report 5232359-X (Version None)
Quarter: 2007Q1

REPORT INFORMATION
  Report Type: 
  Country: None (occurrence: None)
  Receive Date: 20070207
  Receipt Date: 20070124
  Transmission Date: 20070707
  Serious: Yes (Death)
  Sender: FDA-Public Use
  Company Number: BEWYE317224JAN07

PATIENT
  Age: 71 Year
  Sex: Male

DRUGS (11)
  1. ENBREL [Suspect]
     Indication: RHEUMATOID ARTHRITIS
     Route: 058
     Dates: start: 20020911
  2. AMLODIPINE [Concomitant]
     Route: 048
  3. ASAFLOW [Concomitant]
     Route: 048
  4. LIPITOR [Concomitant]
     Route: 048
  5. XANAX [Concomitant]
     Route: 048
  6. METFORMIN HCL [Concomitant]
     Route: 048
  7. NOVOMIX [Concomitant]
     Indication: DIABETES MELLITUS
     Dosage: 38 IU IN THE MORNING AND IN THE EVENING
     Route: 058
  8. SELOZOK [Concomitant]
     Route: 048
  9. TERAZOSIN HCL [Concomitant]
     Dosage: 5 MG
     Route: 048
  10. HUMALOG PEN [Concomitant]
     Indication: DIABETES MELLITUS
     Dosage: 3 UNITS AT NOON WHEN GLYCEMIA}200
     Route: 058
  11. LISINOPRIL [Concomitant]
     Route: 048

REACTIONS (1)
  - PANCREATIC NEOPLASM [None]
